FAERS Safety Report 7483123-2 (Version None)
Quarter: 2011Q2

REPORT INFORMATION
  Report Type: 
  Country: None (occurrence: None)
  Receive Date: 20110516
  Receipt Date: 20110505
  Transmission Date: 20111010
  Serious: Yes (Hospitalization)
  Sender: FDA-Public Use
  Company Number: IL-MERCK-99109757

PATIENT
  Age: 73 Year
  Sex: Male

DRUGS (3)
  1. KETOCONAZOLE [Suspect]
     Indication: CANDIDIASIS
     Route: 048
  2. KETOCONAZOLE [Suspect]
     Indication: PROSTATE CANCER
     Route: 048
  3. ZOCOR [Suspect]
     Indication: HYPERCHOLESTEROLAEMIA
     Route: 048

REACTIONS (3)
  - RHABDOMYOLYSIS [None]
  - HEPATOTOXICITY [None]
  - DRUG INTERACTION [None]
